FAERS Safety Report 5366648-5 (Version None)
Quarter: 2007Q2

REPORT INFORMATION
  Report Type: 
  Country: None (occurrence: None)
  Receive Date: 20070622
  Receipt Date: 20070615
  Transmission Date: 20071010
  Serious: Yes (Other)
  Sender: FDA-Public Use
  Company Number: US-PFIZER INC-2007049680

PATIENT
  Sex: Female
  Weight: 66.818 kg

DRUGS (8)
  1. DETROL LA [Suspect]
     Indication: INCONTINENCE
     Route: 048
  2. NAMENDA [Concomitant]
  3. ARICEPT [Concomitant]
  4. NORVASC [Concomitant]
  5. LASIX [Concomitant]
  6. TAPAZOLE [Concomitant]
  7. ASACOL [Concomitant]
  8. LISINOPRIL [Concomitant]

REACTIONS (4)
  - CYSTITIS [None]
  - DEMENTIA [None]
  - HALLUCINATION [None]
  - MENTAL DISORDER [None]
